FAERS Safety Report 9377275 (Version 1)
Quarter: 2013Q3

REPORT INFORMATION
  Report Type: Spontaneous
  Country: FR (occurrence: FR)
  Receive Date: 20130701
  Receipt Date: 20130701
  Transmission Date: 20140515
  Serious: Yes (Hospitalization)
  Sender: FDA-Public Use
  Company Number: FR-ASTRAZENECA-2013SE48921

PATIENT
  Sex: 0

DRUGS (2)
  1. BRILIQUE [Suspect]
     Indication: STENT PLACEMENT
     Route: 048
     Dates: start: 201306
  2. PLAVIX [Concomitant]
     Route: 065
     Dates: start: 201306, end: 201306

REACTIONS (2)
  - Thrombosis in device [Recovered/Resolved]
  - Drug prescribing error [Recovered/Resolved]
